FAERS Safety Report 5133704-6 (Version None)
Quarter: 2006Q4

REPORT INFORMATION
  Report Type: 
  Country: None (occurrence: None)
  Receive Date: 20061024
  Receipt Date: 20061006
  Transmission Date: 20070319
  Serious: Yes (Other)
  Sender: FDA-Public Use
  Company Number: JP-ROCHE-466941

PATIENT
  Age: 83 Year
  Sex: Male

DRUGS (4)
  1. TAMIFLU [Suspect]
     Route: 048
     Dates: start: 20060109, end: 20060111
  2. METHYLPREDNISOLONE SODIUM SUCCINATE [Concomitant]
     Dosage: DRUG NAME REPORTED AS PRIDOL.
     Route: 042
     Dates: start: 20060109
  3. AMINOPHYLLINE [Concomitant]
     Route: 042
     Dates: start: 20060109
  4. SOLDEM [Concomitant]
     Route: 048

REACTIONS (3)
  - DELIRIUM [None]
  - FLUSHING [None]
  - RESTLESSNESS [None]
